FAERS Safety Report 14549476 (Version 1)
Quarter: 2018Q1

REPORT INFORMATION
  Report Type: Report from Study
  Country: DE (occurrence: DE)
  Receive Date: 20180219
  Receipt Date: 20180219
  Transmission Date: 20180509
  Serious: Yes (Other)
  Sender: FDA-Public Use
  Company Number: DE-CONCORDIA PHARMACEUTICALS INC.-E2B_00009946

PATIENT
  Age: 62 Year
  Sex: Female

DRUGS (5)
  1. PREDNISOLONE. [Suspect]
     Active Substance: PREDNISOLONE
     Dosage: REDUCED DOSE TO LESS THAN 2 MG PER DAY
     Route: 048
  2. TOCILIZUMAB. [Suspect]
     Active Substance: TOCILIZUMAB
     Indication: RHEUMATOID ARTHRITIS
     Route: 058
     Dates: start: 20140620
  3. TRAMAGIT [Concomitant]
     Route: 065
  4. PREDNISOLONE. [Suspect]
     Active Substance: PREDNISOLONE
     Indication: RHEUMATOID ARTHRITIS
     Route: 048
  5. LYRICA [Concomitant]
     Active Substance: PREGABALIN
     Dosage: DAYS
     Route: 065

REACTIONS (11)
  - Nasopharyngitis [Recovered/Resolved]
  - Arthralgia [Unknown]
  - Back pain [Not Recovered/Not Resolved]
  - Arthralgia [Not Recovered/Not Resolved]
  - Alopecia [Not Recovered/Not Resolved]
  - Arthropathy [Not Recovered/Not Resolved]
  - Joint destruction [Not Recovered/Not Resolved]
  - Nasopharyngitis [Recovered/Resolved]
  - Cough [Recovered/Resolved]
  - Peripheral swelling [Not Recovered/Not Resolved]
  - Vitamin D deficiency [Not Recovered/Not Resolved]

NARRATIVE: CASE EVENT DATE: 20140620
